FAERS Safety Report 5511649-7 (Version None)
Quarter: 2007Q4

REPORT INFORMATION
  Report Type: 
  Country: None (occurrence: None)
  Receive Date: 20071109
  Receipt Date: 20071026
  Transmission Date: 20080405
  Serious: Yes (Death)
  Sender: FDA-Public Use
  Company Number: GB-RANBAXY-2007RR-11049

PATIENT

DRUGS (4)
  1. ENALAPRIL MALEATE [Suspect]
     Indication: HYPERTENSION
     Dosage: 20 MG, QD
     Route: 064
  2. ATENOLOL TABLETS BP 100MG [Concomitant]
     Indication: HYPERTENSION
     Dosage: 100 MG, UNK
     Route: 064
     Dates: start: 19860101
  3. AZATHIOPRINE [Concomitant]
     Indication: IMMUNOSUPPRESSION
     Dosage: 100 MG, UNK
     Route: 064
     Dates: start: 19850101
  4. PREDNISOLONE [Concomitant]
     Indication: IMMUNOSUPPRESSION
     Dosage: 15 MG, UNK
     Route: 064
     Dates: start: 19850101

REACTIONS (4)
  - CONGENITAL MUSCULOSKELETAL ANOMALY [None]
  - HAEMORRHAGE INTRACRANIAL [None]
  - NEONATAL ANURIA [None]
  - OLIGOHYDRAMNIOS [None]
